FAERS Safety Report 4435729-2 (Version None)
Quarter: 2004Q3

REPORT INFORMATION
  Report Type: 
  Country: None (occurrence: None)
  Receive Date: 20040826
  Receipt Date: 20040817
  Transmission Date: 20050211
  Serious: Yes (Hospitalization)
  Sender: FDA-Public Use
  Company Number: FABR-10721

PATIENT
  Age: 46 Year
  Sex: Female
  Weight: 49.7 kg

DRUGS (4)
  1. FABRAZYME [Suspect]
     Indication: FABRY'S DISEASE
     Dosage: 50 MG Q2WKS IV
     Route: 042
     Dates: start: 20030129
  2. PRAVASTATIN SODIUM [Concomitant]
  3. ENALAPRIL MALEATE [Concomitant]
  4. CANDESARTAN CILEXETIL [Concomitant]

REACTIONS (4)
  - BLOOD PRESSURE DECREASED [None]
  - NYSTAGMUS [None]
  - POST PROCEDURAL COMPLICATION [None]
  - VERTIGO [None]
